FAERS Safety Report 8756345 (Version 2)
Quarter: 2013Q4

REPORT INFORMATION
  Report Type: Spontaneous
  Country: US (occurrence: US)
  Receive Date: 20120828
  Receipt Date: 20131101
  Transmission Date: 20140711
  Serious: No
  Sender: FDA-Public Use
  Company Number: US-009507513-1208USA009734

PATIENT
  Sex: Female

DRUGS (4)
  1. SAPHRIS [Suspect]
     Indication: DEPRESSION
     Route: 060
  2. SAPHRIS [Suspect]
     Indication: INSOMNIA
  3. CYMBALTA [Concomitant]
  4. NUVIGIL LAMEXCT [Concomitant]

REACTIONS (4)
  - Insomnia [Not Recovered/Not Resolved]
  - Depression [Not Recovered/Not Resolved]
  - Inappropriate schedule of drug administration [Recovered/Resolved]
  - Off label use [Recovered/Resolved]
